FAERS Safety Report 7088505-9 (Version None)
Quarter: 2010Q4

REPORT INFORMATION
  Report Type: 
  Country: None (occurrence: None)
  Receive Date: 20101108
  Receipt Date: 20101026
  Transmission Date: 20110411
  Serious: Yes (Other)
  Sender: FDA-Public Use
  Company Number: US-ROCHE-737615

PATIENT
  Sex: Female

DRUGS (3)
  1. BEVACIZUMAB [Suspect]
     Dosage: LAST PROTOCOL TREATMENT DATE: 21 OCTOBER 2010
     Route: 065
     Dates: start: 20100920
  2. IRINOTECAN HCL [Suspect]
     Route: 065
  3. TEMOZOLOMIDE [Suspect]
     Route: 065

REACTIONS (2)
  - ALANINE AMINOTRANSFERASE INCREASED [None]
  - ASPARTATE AMINOTRANSFERASE INCREASED [None]
